FAERS Safety Report 25661637 (Version 1)
Quarter: 2025Q3

REPORT INFORMATION
  Report Type: Report from Study
  Country: US (occurrence: US)
  Receive Date: 20250808
  Receipt Date: 20250808
  Transmission Date: 20251020
  Serious: No
  Sender: AGIOS PHARMACEUTICALS
  Company Number: US-AGIOS-2507US04399

PATIENT
  Sex: Female

DRUGS (1)
  1. MITAPIVAT [Suspect]
     Active Substance: MITAPIVAT
     Indication: Product used for unknown indication
     Route: 065
     Dates: start: 20231121

REACTIONS (1)
  - Haemoglobin decreased [Unknown]
